FAERS Safety Report 7596604-8 (Version None)
Quarter: 2011Q3

REPORT INFORMATION
  Report Type: 
  Country: None (occurrence: None)
  Receive Date: 20110708
  Receipt Date: 20110630
  Transmission Date: 20111222
  Serious: Yes (Other)
  Sender: FDA-Public Use
  Company Number: JP-JNJFOC-20110102617

PATIENT
  Sex: Female
  Weight: 97 kg

DRUGS (36)
  1. DOXORUBICIN HCL [Suspect]
     Dosage: CYCLE 6
     Route: 042
     Dates: start: 20100118, end: 20100118
  2. DOXORUBICIN HCL [Suspect]
     Dosage: CYCLE 4
     Route: 042
     Dates: start: 20091116, end: 20091116
  3. DOXORUBICIN HCL [Suspect]
     Dosage: CYCLE 2
     Route: 042
     Dates: start: 20090914, end: 20090914
  4. PARAPLATIN [Suspect]
     Indication: OVARIAN CANCER RECURRENT
     Route: 042
     Dates: start: 20090914, end: 20100426
  5. DECADRON [Concomitant]
     Indication: PROPHYLAXIS
     Route: 048
     Dates: end: 20100429
  6. PRIMPERAN TAB [Concomitant]
     Indication: NAUSEA
     Route: 048
     Dates: start: 20090914, end: 20100502
  7. DECADRON [Concomitant]
     Route: 042
     Dates: start: 20090914, end: 20091214
  8. ZANTAC [Concomitant]
     Route: 042
     Dates: start: 20090914, end: 20100426
  9. LAXOBERON [Concomitant]
     Indication: CONSTIPATION
     Route: 048
     Dates: start: 20091019
  10. PARAPLATIN [Suspect]
     Route: 042
     Dates: start: 20090817, end: 20090817
  11. UREPEARL [Concomitant]
     Indication: PALMAR-PLANTAR ERYTHRODYSAESTHESIA SYNDROME
     Route: 061
  12. PRIMPERAN TAB [Concomitant]
     Indication: PROPHYLAXIS
     Route: 048
     Dates: start: 20090914, end: 20100502
  13. DECADRON [Concomitant]
     Route: 042
     Dates: start: 20090817, end: 20090817
  14. ZANTAC [Concomitant]
     Route: 042
     Dates: start: 20090817, end: 20090817
  15. PYDOXAL [Concomitant]
     Indication: PROPHYLAXIS
     Route: 048
     Dates: end: 20100530
  16. DECADRON [Concomitant]
     Indication: NAUSEA
     Route: 048
     Dates: end: 20100429
  17. DECADRON [Concomitant]
     Route: 048
     Dates: end: 20100121
  18. DECADRON [Concomitant]
     Route: 042
     Dates: start: 20100118, end: 20100426
  19. ZOFRAN [Concomitant]
     Indication: PROPHYLAXIS
     Route: 042
     Dates: start: 20090914, end: 20100426
  20. DOXORUBICIN HCL [Suspect]
     Dosage: CYCLE 5
     Route: 042
     Dates: start: 20091214, end: 20091214
  21. DOXORUBICIN HCL [Suspect]
     Indication: OVARIAN CANCER RECURRENT
     Dosage: CYCLE 7
     Route: 042
     Dates: start: 20100215, end: 20100215
  22. DOXORUBICIN HCL [Suspect]
     Dosage: CYCLE 3
     Route: 042
     Dates: start: 20091019, end: 20091019
  23. DOXORUBICIN HCL [Suspect]
     Dosage: CYCLE 9
     Route: 042
     Dates: start: 20100426, end: 20100426
  24. ZANTAC [Suspect]
     Route: 048
     Dates: end: 20100429
  25. ALPRAZOLAM [Concomitant]
     Indication: DECREASED APPETITE
     Route: 048
     Dates: end: 20100502
  26. DOXORUBICIN HCL [Suspect]
     Dosage: CYCLE 1
     Route: 042
     Dates: start: 20090817, end: 20090817
  27. MAGNESIUM SULFATE [Concomitant]
     Indication: CONSTIPATION
     Route: 048
     Dates: start: 20100118
  28. SELBEX [Concomitant]
     Indication: PROPHYLAXIS
     Route: 048
     Dates: start: 20100426, end: 20100525
  29. DOXORUBICIN HCL [Suspect]
     Dosage: CYCLE 8
     Route: 042
     Dates: start: 20100324, end: 20100324
  30. PYDOXAL [Concomitant]
     Indication: PALMAR-PLANTAR ERYTHRODYSAESTHESIA SYNDROME
     Route: 048
     Dates: end: 20100530
  31. ZOFRAN [Concomitant]
     Route: 042
     Dates: start: 20090817, end: 20100817
  32. ZANTAC [Suspect]
     Indication: PROPHYLAXIS
     Route: 048
     Dates: end: 20100121
  33. UREPEARL [Concomitant]
     Indication: PROPHYLAXIS
     Route: 061
  34. DECADRON [Concomitant]
     Route: 048
     Dates: end: 20100121
  35. ALPRAZOLAM [Concomitant]
     Indication: PROPHYLAXIS
     Route: 048
     Dates: end: 20100502
  36. MAGNESIUM SULFATE [Concomitant]
     Route: 048
     Dates: start: 20090914, end: 20091116

REACTIONS (6)
  - NAUSEA [None]
  - NEUROPATHY PERIPHERAL [None]
  - CONSTIPATION [None]
  - STOMATITIS [None]
  - DECREASED APPETITE [None]
  - PALMAR-PLANTAR ERYTHRODYSAESTHESIA SYNDROME [None]
